FAERS Safety Report 7988794 (Version 2)
Quarter: 2012Q4

REPORT INFORMATION
  Report Type: 
  Country: CA (occurrence: CA)
  Receive Date: 20110613
  Receipt Date: 20121106
  Transmission Date: 20130627
  Serious: Yes (Other)
  Sender: FDA-Public Use
  Company Number: PHMT2007CA01506

PATIENT
  Sex: Female

DRUGS (2)
  1. SANDOSTATIN LAR [Suspect]
     Indication: CARCINOID TUMOUR
     Dosage: 20 mg, QMO
     Route: 030
     Dates: start: 20070503
  2. SANDOSTATIN LAR [Suspect]
     Dosage: 30 mg, UNK

REACTIONS (12)
  - Nephrolithiasis [Unknown]
  - Brain neoplasm [Unknown]
  - Hypoaesthesia [Unknown]
  - Intestinal mass [Unknown]
  - Adrenal disorder [Unknown]
  - Headache [Unknown]
  - Hyperhidrosis [Unknown]
  - Muscle spasms [Not Recovered/Not Resolved]
  - Flushing [Unknown]
  - Abdominal distension [Unknown]
  - Flatulence [Unknown]
  - Diarrhoea [Not Recovered/Not Resolved]
